FAERS Safety Report 5624222-7 (Version None)
Quarter: 2008Q1

REPORT INFORMATION
  Report Type: 
  Country: None (occurrence: None)
  Receive Date: 20080213
  Receipt Date: 20080201
  Transmission Date: 20080703
  Serious: Yes (Hospitalization)
  Sender: FDA-Public Use
  Company Number: PHBS2008US01717

PATIENT
  Age: 17 Year
  Sex: Male

DRUGS (3)
  1. METHYLPHENIDATE HCL [Suspect]
     Indication: DEPRESSION
     Route: 065
  2. SERTRALINE [Suspect]
     Route: 065
  3. RISPERIDONE [Suspect]
     Route: 065

REACTIONS (27)
  - ABDOMINAL PAIN [None]
  - ABDOMINAL TENDERNESS [None]
  - ALANINE AMINOTRANSFERASE INCREASED [None]
  - ARTHRALGIA [None]
  - ASPARTATE AMINOTRANSFERASE INCREASED [None]
  - ASTHENIA [None]
  - BIOPSY KIDNEY [None]
  - BLOOD AMYLASE INCREASED [None]
  - CHEST PAIN [None]
  - COMPUTERISED TOMOGRAM ABNORMAL [None]
  - DIARRHOEA [None]
  - DILATATION VENTRICULAR [None]
  - DYSPNOEA [None]
  - EYELID OEDEMA [None]
  - FOOD POISONING [None]
  - GAMMA-GLUTAMYLTRANSFERASE INCREASED [None]
  - HAEMATURIA [None]
  - HENOCH-SCHONLEIN PURPURA [None]
  - LEUKOCYTOCLASTIC VASCULITIS [None]
  - LIPASE INCREASED [None]
  - MELAENA [None]
  - NAUSEA [None]
  - PROTEINURIA [None]
  - RASH MACULO-PAPULAR [None]
  - STREPTOCOCCAL IDENTIFICATION TEST [None]
  - UPPER RESPIRATORY TRACT INFECTION [None]
  - VOMITING [None]
